FAERS Safety Report 6214069-5 (Version None)
Quarter: 2009Q2

REPORT INFORMATION
  Report Type: 
  Country: None (occurrence: None)
  Receive Date: 20090604
  Receipt Date: 20090520
  Transmission Date: 20091009
  Serious: Yes (Hospitalization)
  Sender: FDA-Public Use
  Company Number: US-BAYER-200921375NA

PATIENT
  Age: 21 Year
  Sex: Male

DRUGS (9)
  1. CAMPATH [Suspect]
     Indication: ACUTE LYMPHOCYTIC LEUKAEMIA
     Dosage: AS USED: 3 MG
     Route: 058
     Dates: start: 20070201, end: 20070201
  2. CAMPATH [Suspect]
     Dosage: AS USED: 10 MG
     Route: 058
     Dates: start: 20070201, end: 20070201
  3. CAMPATH [Suspect]
     Dosage: TOTAL DAILY DOSE: 30 MG
     Route: 058
     Dates: end: 20070309
  4. CYCLOPHOSPHAMIDE [Suspect]
     Indication: ACUTE LYMPHOCYTIC LEUKAEMIA
     Dosage: AS USED: 1200 MG/M2
     Route: 042
     Dates: start: 20060927, end: 20070402
  5. DAUNORUBICIN HCL [Suspect]
     Indication: ACUTE LYMPHOCYTIC LEUKAEMIA
     Dosage: AS USED: 80 MG/M2
     Route: 042
     Dates: start: 20060927, end: 20070404
  6. VINCRISTINE [Suspect]
     Indication: ACUTE LYMPHOCYTIC LEUKAEMIA
     Dosage: AS USED: 2 MG
     Route: 040
     Dates: start: 20060927, end: 20070424
  7. DEXAMETHASONE [Suspect]
     Indication: ACUTE LYMPHOCYTIC LEUKAEMIA
     Dosage: TOTAL DAILY DOSE: 10 MG/M2
     Route: 048
     Dates: start: 20060927, end: 20070409
  8. L-ASPARAGINASE [Suspect]
     Indication: ACUTE LYMPHOCYTIC LEUKAEMIA
     Dosage: 6000 U/M2 SC/IM ON DEFINED DAYS CYCLES 1,2, AND 5
     Dates: start: 20060927, end: 20070424
  9. NEUPOGEN [Suspect]
     Indication: ACUTE LYMPHOCYTIC LEUKAEMIA
     Dosage: TOTAL DAILY DOSE: 5 ?G/KG
     Route: 058
     Dates: start: 20060927, end: 20070430

REACTIONS (5)
  - GASTROINTESTINAL MOTILITY DISORDER [None]
  - HEART SOUNDS ABNORMAL [None]
  - LEFT VENTRICULAR DYSFUNCTION [None]
  - PERICARDIAL EFFUSION [None]
  - TRICUSPID VALVE DISEASE [None]
